FAERS Safety Report 12653165 (Version 2)
Quarter: 2016Q3

REPORT INFORMATION
  Report Type: Spontaneous
  Country: US (occurrence: US)
  Receive Date: 20160815
  Receipt Date: 20160920
  Transmission Date: 20161109
  Serious: No
  Sender: FDA-Public Use
  Company Number: US-PFIZER INC-2016383180

PATIENT
  Age: 40 Year
  Sex: Female

DRUGS (3)
  1. VICOPROFEN [Concomitant]
     Active Substance: HYDROCODONE BITARTRATE\IBUPROFEN
     Indication: BACK PAIN
     Dosage: UNK, (HYDROCODONE BITARTRATE: 7.5 MG; IBUPROFEN: 200 MG)
     Dates: start: 20160101, end: 20160815
  2. LYRICA [Suspect]
     Active Substance: PREGABALIN
     Indication: NEUROPATHY PERIPHERAL
     Dosage: 50 MG, 3X/DAY
     Route: 048
     Dates: start: 20160715, end: 20160720
  3. VICOPROFEN [Concomitant]
     Active Substance: HYDROCODONE BITARTRATE\IBUPROFEN
     Indication: NEUROPATHY PERIPHERAL

REACTIONS (2)
  - Dermatitis [Unknown]
  - Rash [Recovered/Resolved with Sequelae]

NARRATIVE: CASE EVENT DATE: 20160716
